FAERS Safety Report 9735837 (Version 1)
Quarter: 2013Q4

REPORT INFORMATION
  Report Type: Spontaneous
  Country: US (occurrence: US)
  Receive Date: 20131206
  Receipt Date: 20131206
  Transmission Date: 20140711
  Serious: No
  Sender: FDA-Public Use
  Company Number: US-GILEAD-2009-0023832

PATIENT
  Age: 66 Year
  Sex: Female

DRUGS (14)
  1. LETAIRIS [Suspect]
     Indication: PULMONARY ARTERIAL HYPERTENSION
     Route: 048
     Dates: start: 20090722, end: 20090815
  2. VITAMIN A [Concomitant]
  3. VITAMIN B12 [Concomitant]
  4. VITAMIN C [Concomitant]
  5. VITAMIN E [Concomitant]
  6. CO Q10 [Concomitant]
  7. CENTRUM SILVER [Concomitant]
  8. ASPIRIN [Concomitant]
  9. COREG [Concomitant]
  10. LIPITOR [Concomitant]
  11. GLIPIZIDE [Concomitant]
  12. METFORMIN [Concomitant]
  13. HYDROCHLOROTHIAZIDE [Concomitant]
  14. FUROSEMIDE [Concomitant]

REACTIONS (1)
  - Oedema [Recovering/Resolving]
